FAERS Safety Report 12118563 (Version 1)
Quarter: 2016Q1

REPORT INFORMATION
  Report Type: Spontaneous
  Country: US (occurrence: None)
  Receive Date: 20160225
  Receipt Date: 20160225
  Transmission Date: 20160526
  Serious: No
  Sender: FDA-Public Use
  Company Number: None

PATIENT
  Age: 47 Year
  Sex: Female
  Weight: 74.84 kg

DRUGS (7)
  1. TRIAMT/HCTZ 37.5/25MG LANNETT [Suspect]
     Active Substance: HYDROCHLOROTHIAZIDE\TRIAMTERENE
     Indication: RHEUMATIC DISORDER
     Dosage: 1 PILL
     Route: 048
     Dates: start: 20130201, end: 20160216
  2. SULFASALAZINE. [Concomitant]
     Active Substance: SULFASALAZINE
  3. DOXYCYLINE [Concomitant]
     Active Substance: DOXYCYCLINE
  4. ETOLODOLAC [Concomitant]
  5. FLAXSEED [Concomitant]
     Active Substance: FLAX SEED
  6. TRIAMT/HCTZ 37.5/25MG LANNETT [Suspect]
     Active Substance: HYDROCHLOROTHIAZIDE\TRIAMTERENE
     Indication: MENIERE^S DISEASE
     Dosage: 1 PILL
     Route: 048
     Dates: start: 20130201, end: 20160216
  7. PRIMROSE OIL [Concomitant]

REACTIONS (5)
  - Inflammation [None]
  - Drug ineffective [None]
  - Product substitution issue [None]
  - Dizziness [None]
  - Condition aggravated [None]

NARRATIVE: CASE EVENT DATE: 20150202
